FAERS Safety Report 6705498-1 (Version None)
Quarter: 2010Q2

REPORT INFORMATION
  Report Type: 
  Country: None (occurrence: None)
  Receive Date: 20100503
  Receipt Date: 20100422
  Transmission Date: 20101027
  Serious: No
  Sender: FDA-Public Use
  Company Number: US-BIOGENIDEC-2010BI013940

PATIENT
  Age: 55 Year
  Sex: Female

DRUGS (1)
  1. TYSABRI [Suspect]
     Indication: MULTIPLE SCLEROSIS
     Route: 042
     Dates: start: 20091117

REACTIONS (7)
  - ABDOMINAL DISCOMFORT [None]
  - BRONCHITIS [None]
  - COUGH [None]
  - FATIGUE [None]
  - LARYNGITIS [None]
  - NASOPHARYNGITIS [None]
  - SINUSITIS [None]
